FAERS Safety Report 5424706-0 (Version None)
Quarter: 2007Q3

REPORT INFORMATION
  Report Type: 
  Country: None (occurrence: None)
  Receive Date: 20070822
  Receipt Date: 20070822
  Transmission Date: 20080115
  Serious: Yes (Disabling, Other)
  Sender: FDA-Public Use
  Company Number: None

PATIENT
  Age: 10 Year
  Sex: Female
  Weight: 36.5 kg

DRUGS (2)
  1. MIRTAZAPINE [Suspect]
     Indication: ANXIETY
     Dosage: 1/2 TAB DAILY ORALLY
     Route: 048
     Dates: start: 20070512
  2. FLUOXETINE [Concomitant]

REACTIONS (3)
  - IRRITABILITY [None]
  - TYPE 1 DIABETES MELLITUS [None]
  - VOMITING [None]
